FAERS Safety Report 9191957 (Version 1)
Quarter: 2013Q1

REPORT INFORMATION
  Report Type: Spontaneous
  Country: US (occurrence: US)
  Receive Date: 20130327
  Receipt Date: 20130327
  Transmission Date: 20140127
  Serious: No
  Sender: FDA-Public Use
  Company Number: US-BIOGENIDEC-2013BI026910

PATIENT
  Age: 50 None
  Sex: Female

DRUGS (3)
  1. TYSABRI [Suspect]
     Indication: MULTIPLE SCLEROSIS
     Route: 042
     Dates: start: 20121105
  2. BACLOFEN [Concomitant]
     Indication: MUSCLE SPASTICITY
     Dates: start: 20120409
  3. BACLOFEN [Concomitant]
     Indication: MUSCLE SPASTICITY
     Route: 048

REACTIONS (6)
  - Muscle spasticity [Not Recovered/Not Resolved]
  - Medical device complication [Not Recovered/Not Resolved]
  - Muscle tightness [Not Recovered/Not Resolved]
  - Pain in extremity [Not Recovered/Not Resolved]
  - Depressed mood [Recovered/Resolved]
  - Choking sensation [Recovered/Resolved]
